FAERS Safety Report 10372549 (Version 1)
Quarter: 2014Q3

REPORT INFORMATION
  Report Type: Spontaneous
  Country: US (occurrence: US)
  Receive Date: 20140808
  Receipt Date: 20140808
  Transmission Date: 20150326
  Serious: No
  Sender: FDA-Public Use
  Company Number: US-BRISTOL-MYERS SQUIBB COMPANY-19174929

PATIENT
  Age: 71 Year
  Sex: Female
  Weight: 62.36 kg

DRUGS (14)
  1. SPRYCEL [Suspect]
     Active Substance: DASATINIB
     Indication: LEUKAEMIA
     Dosage: LAST REFILL:20JUN13
     Dates: start: 20130523
  2. METFORMIN HCL [Concomitant]
     Active Substance: METFORMIN HYDROCHLORIDE
  3. OMEGA-3 ACIDS [Concomitant]
     Active Substance: OMEGA-3 FATTY ACIDS
     Dosage: OMEGA-3 FISH OIL
  4. OMEPRAZOLE. [Concomitant]
     Active Substance: OMEPRAZOLE
     Dosage: OMEPRAZOLE DR
  5. METOPROLOL [Concomitant]
     Active Substance: METOPROLOL
  6. VITAMIN D3 [Concomitant]
     Active Substance: CHOLECALCIFEROL
  7. BUPROPION [Concomitant]
     Active Substance: BUPROPION
     Indication: ARTHRITIS
  8. KLOR-CON [Concomitant]
     Active Substance: POTASSIUM CHLORIDE
  9. LEVOTHYROXINE [Concomitant]
     Active Substance: LEVOTHYROXINE
  10. FOLIC ACID. [Concomitant]
     Active Substance: FOLIC ACID
     Indication: RESTLESS LEGS SYNDROME
  11. LOSARTAN POTASSIUM + HCTZ [Concomitant]
     Active Substance: HYDROCHLOROTHIAZIDE\LOSARTAN
  12. MULTIVITAMIN [Concomitant]
     Active Substance: VITAMINS
  13. TRAMADOL HCL [Concomitant]
     Active Substance: TRAMADOL HYDROCHLORIDE
     Indication: ARTHRITIS
  14. BIOTIN [Concomitant]
     Active Substance: BIOTIN
     Indication: RESTLESS LEGS SYNDROME

REACTIONS (2)
  - Headache [Unknown]
  - Vomiting [Unknown]
